FAERS Safety Report 9601949 (Version 1)
Quarter: 2013Q4

REPORT INFORMATION
  Report Type: Spontaneous
  Country: PT (occurrence: PT)
  Receive Date: 20131007
  Receipt Date: 20131007
  Transmission Date: 20140711
  Serious: Yes (Hospitalization)
  Sender: FDA-Public Use
  Company Number: PT-B.I. PHARMACEUTICALS,INC./RIDGEFIELD-2013-BI-31173PO

PATIENT
  Age: 76 Year
  Sex: Female

DRUGS (3)
  1. PRADAXA [Suspect]
     Indication: ATRIAL FIBRILLATION
     Dosage: 220 MG
     Route: 048
  2. PRAVASTATIN [Concomitant]
  3. ANXIOLYTIC (UNSPECIFIED) [Concomitant]

REACTIONS (2)
  - Embolic stroke [Recovered/Resolved]
  - Haemorrhagic transformation stroke [Recovered/Resolved]
